FAERS Safety Report 9331715 (Version 2)
Quarter: 2013Q2

REPORT INFORMATION
  Report Type: Spontaneous
  Country: ES (occurrence: ES)
  Receive Date: 20130605
  Receipt Date: 20130611
  Transmission Date: 20140414
  Serious: Yes (Death)
  Sender: FDA-Public Use
  Company Number: ES-VERTEX PHARMACEUTICALS INC-000000000000001069

PATIENT
  Age: 52 Year
  Sex: Female

DRUGS (3)
  1. INCIVO [Suspect]
     Indication: HEPATITIS C
     Dosage: DOSAGE FORM: TABLET
     Route: 065
  2. PEGINTERFERON ALFA-2A [Concomitant]
     Indication: CHRONIC HEPATITIS C
     Route: 065
  3. RIBAVIRIN [Concomitant]
     Indication: CHRONIC HEPATITIS C

REACTIONS (2)
  - Infection [Fatal]
  - Off label use [Unknown]
